FAERS Safety Report 17856664 (Version 5)
Quarter: 2020Q3

REPORT INFORMATION
  Report Type: Spontaneous
  Country: US (occurrence: US)
  Receive Date: 20200603
  Receipt Date: 20200904
  Transmission Date: 20201103
  Serious: Yes (Hospitalization, Other)
  Sender: FDA-Public Use
  Company Number: US-SEATTLE GENETICS-2020SGN02286

PATIENT
  Sex: Female

DRUGS (3)
  1. HERCEPTIN [Concomitant]
     Active Substance: TRASTUZUMAB
     Indication: BREAST CANCER FEMALE
     Dosage: UNK, Q3WEEKS
  2. TUKYSA [Suspect]
     Active Substance: TUCATINIB
     Indication: BREAST CANCER FEMALE
     Dosage: UNK, BID
  3. CAPECITABINE. [Concomitant]
     Active Substance: CAPECITABINE
     Indication: BREAST CANCER FEMALE
     Dosage: UNK, BID

REACTIONS (10)
  - Blindness [Unknown]
  - Cerebral haemorrhage [Unknown]
  - Product dose omission issue [Unknown]
  - Hospice care [Unknown]
  - Dyspnoea [Unknown]
  - Seizure [Unknown]
  - Aspiration pleural cavity [Unknown]
  - Pericardial drainage [Unknown]
  - Unevaluable event [Unknown]
  - Blood potassium decreased [Unknown]
